FAERS Safety Report 17922109 (Version 1)
Quarter: 2020Q2

REPORT INFORMATION
  Report Type: Spontaneous
  Country: US (occurrence: US)
  Receive Date: 20200621
  Receipt Date: 20200621
  Transmission Date: 20200714
  Serious: Yes (Hospitalization)
  Sender: FDA-Public Use
  Company Number: None

PATIENT
  Age: 53 Year
  Sex: Male
  Weight: 74 kg

DRUGS (7)
  1. GABAPENTIN 300 MG QPM [Concomitant]
     Dates: start: 20200531
  2. BACLOFEN 5 MG TTID [Concomitant]
     Dates: start: 20200531
  3. REMDESIVIR EUA SOLUTION [Suspect]
     Active Substance: REMDESIVIR
     Indication: CORONAVIRUS INFECTION
     Route: 041
     Dates: start: 20200531, end: 20200603
  4. MIDODRINE 10 MG TID [Concomitant]
     Dates: start: 20200531
  5. PIPERACILLIN/TAZOBACTAM 3.375G Q8H [Concomitant]
     Dates: start: 20200531, end: 20200603
  6. HEPARIN SQ TID [Concomitant]
     Dates: start: 20200531
  7. VANCOMYCIN 1.25G BID [Concomitant]
     Dates: start: 20200531, end: 20200603

REACTIONS (2)
  - Condition aggravated [None]
  - Acute kidney injury [None]

NARRATIVE: CASE EVENT DATE: 20200604
